FAERS Safety Report 18857541 (Version 4)
Quarter: 2021Q2

REPORT INFORMATION
  Report Type: Spontaneous
  Country: US (occurrence: US)
  Receive Date: 20210208
  Receipt Date: 20210416
  Transmission Date: 20210717
  Serious: Yes (Other)
  Sender: FDA-Public Use
  Company Number: US-BEH-2021127876

PATIENT
  Age: 8 Year
  Sex: Male

DRUGS (6)
  1. IDELVION [Suspect]
     Active Substance: COAGULATION FACTOR IX RECOMBINANT HUMAN
     Indication: FACTOR IX DEFICIENCY
     Dosage: 543 INTERNATIONAL UNIT, QW
     Route: 042
     Dates: start: 20201023
  2. IDELVION [Suspect]
     Active Substance: COAGULATION FACTOR IX RECOMBINANT HUMAN
     Dosage: 453 INTERNATIONAL UNIT, QW
     Route: 042
     Dates: start: 20201023
  3. IDELVION [Suspect]
     Active Substance: COAGULATION FACTOR IX RECOMBINANT HUMAN
     Dosage: 453 INTERNATIONAL UNIT, QW
     Route: 042
     Dates: start: 20201023
  4. IDELVION [Suspect]
     Active Substance: COAGULATION FACTOR IX RECOMBINANT HUMAN
     Indication: FACTOR VIII DEFICIENCY
     Dosage: 1048 INTERNATIONAL UNIT, QW
     Route: 042
     Dates: start: 20201023
  5. IDELVION [Suspect]
     Active Substance: COAGULATION FACTOR IX RECOMBINANT HUMAN
     Indication: FACTOR VIII DEFICIENCY
     Dosage: 1048 INTERNATIONAL UNIT, QW
     Route: 042
     Dates: start: 20201023
  6. IDELVION [Suspect]
     Active Substance: COAGULATION FACTOR IX RECOMBINANT HUMAN
     Indication: FACTOR IX DEFICIENCY
     Dosage: 543 INTERNATIONAL UNIT, QW
     Route: 042
     Dates: start: 20201023

REACTIONS (2)
  - Complication associated with device [Not Recovered/Not Resolved]
  - Impaired healing [Not Recovered/Not Resolved]

NARRATIVE: CASE EVENT DATE: 20210117
